FAERS Safety Report 23904717 (Version 1)
Quarter: 2024Q2

REPORT INFORMATION
  Report Type: Spontaneous
  Country: IN (occurrence: None)
  Receive Date: 20240527
  Receipt Date: 20240527
  Transmission Date: 20240717
  Serious: Yes (Death)
  Sender: FDA-Public Use
  Company Number: IN-ROCHE-3489451

PATIENT
  Age: 74 Year
  Sex: Male

DRUGS (1)
  1. POLIVY [Suspect]
     Active Substance: POLATUZUMAB VEDOTIN-PIIQ
     Indication: Non-Hodgkin^s lymphoma
     Route: 042
     Dates: start: 20240108

REACTIONS (5)
  - Off label use [Unknown]
  - Off label use [Unknown]
  - Pyrexia [Unknown]
  - Liver function test increased [Unknown]
  - Death [Fatal]
